FAERS Safety Report 8340146-9 (Version None)
Quarter: 2012Q2

REPORT INFORMATION
  Report Type: 
  Country: None (occurrence: None)
  Receive Date: 20120507
  Receipt Date: 20120427
  Transmission Date: 20120825
  Serious: No
  Sender: FDA-Public Use
  Company Number: US-BAYER-2012-041877

PATIENT
  Sex: Female

DRUGS (2)
  1. MIRENA [Suspect]
     Dosage: 20 MCG/24HR, UNK
     Dates: start: 20120426
  2. CYTOTEC [Suspect]
     Indication: PROPHYLAXIS
     Dosage: UNK
     Dates: start: 20120426

REACTIONS (4)
  - NAUSEA [None]
  - TREMOR [None]
  - PYREXIA [None]
  - VOMITING [None]
